FAERS Safety Report 4800005-2 (Version None)
Quarter: 2005Q4

REPORT INFORMATION
  Report Type: 
  Country: None (occurrence: None)
  Receive Date: 20051017
  Receipt Date: 20050907
  Transmission Date: 20060501
  Serious: Yes (Death)
  Sender: FDA-Public Use
  Company Number: TR-BRISTOL-MYERS SQUIBB COMPANY-13146204

PATIENT

DRUGS (4)
  1. IFOSFAMIDE [Suspect]
     Indication: STEM CELL TRANSPLANT
  2. ETOPOSIDE [Suspect]
     Indication: STEM CELL TRANSPLANT
  3. IDARUBICIN HCL [Suspect]
     Indication: STEM CELL TRANSPLANT
  4. MESNA [Concomitant]
     Route: 042

REACTIONS (1)
  - LEUKOENCEPHALOPATHY [None]
